FAERS Safety Report 5901597-2 (Version None)
Quarter: 2008Q3

REPORT INFORMATION
  Report Type: 
  Country: None (occurrence: None)
  Receive Date: 20080929
  Receipt Date: 20080910
  Transmission Date: 20090109
  Serious: Yes (Congenital Anomaly)
  Sender: FDA-Public Use
  Company Number: TR-ELI_LILLY_AND_COMPANY-TR200802004491

PATIENT
  Age: 34 Year
  Sex: Female

DRUGS (4)
  1. HUMULIN R [Suspect]
     Indication: GESTATIONAL DIABETES
     Dosage: 5 IU, 3/D
     Route: 064
     Dates: start: 20070801, end: 20080319
  2. HUMULIN N [Suspect]
     Indication: GESTATIONAL DIABETES
     Dosage: 8 IU, EACH EVENING
     Route: 064
     Dates: start: 20070801, end: 20080319
  3. ELEVIT [Concomitant]
     Indication: SUPPLEMENTATION THERAPY
     Dosage: UNK, UNK
     Route: 064
  4. ANTI-DIABETICS [Concomitant]
     Indication: DIABETES MELLITUS
     Route: 064
     Dates: end: 20070801

REACTIONS (2)
  - DRUG EXPOSURE DURING PREGNANCY [None]
  - TRISOMY 21 [None]
